FAERS Safety Report 9715827 (Version 1)
Quarter: 2013Q4

REPORT INFORMATION
  Report Type: Report from Study
  Country: FR (occurrence: FR)
  Receive Date: 20131127
  Receipt Date: 20131127
  Transmission Date: 20140711
  Serious: Yes (Other)
  Sender: FDA-Public Use
  Company Number: FR-ROCHE-1309283

PATIENT
  Age: 77 Year
  Sex: Male
  Weight: 68 kg

DRUGS (8)
  1. RITUXIMAB [Suspect]
     Indication: MANTLE CELL LYMPHOMA
     Route: 042
     Dates: start: 20121108
  2. RITUXIMAB [Suspect]
     Route: 042
     Dates: start: 20121206
  3. BENDAMUSTINE [Suspect]
     Indication: MANTLE CELL LYMPHOMA
     Dosage: 2.5 MG/ML. POUDRE POUR SOLUTION A DILURE POUR PERFUSION.
     Route: 041
     Dates: start: 20121108
  4. BENDAMUSTINE [Suspect]
     Route: 041
     Dates: start: 20121206
  5. BORTEZOMIB [Suspect]
     Indication: MANTLE CELL LYMPHOMA
     Route: 058
     Dates: start: 20121108
  6. BORTEZOMIB [Suspect]
     Route: 058
     Dates: start: 20121206
  7. DEXAMETHASONE [Suspect]
     Indication: MANTLE CELL LYMPHOMA
     Route: 042
     Dates: start: 20121108
  8. DEXAMETHASONE [Suspect]
     Route: 042
     Dates: start: 20121206

REACTIONS (1)
  - Prostate cancer [Not Recovered/Not Resolved]
